FAERS Safety Report 16959700 (Version 1)
Quarter: 2019Q4

REPORT INFORMATION
  Report Type: Spontaneous
  Country: US (occurrence: US)
  Receive Date: 20191025
  Receipt Date: 20191025
  Transmission Date: 20200122
  Serious: No
  Sender: FDA-Public Use
  Company Number: US-009507513-1909USA014844

PATIENT
  Age: 18 Year
  Sex: Female
  Weight: 114.29 kg

DRUGS (1)
  1. NEXPLANON [Suspect]
     Active Substance: ETONOGESTREL
     Indication: CONTRACEPTION
     Dosage: SINGLE IMPLANT, FREQUENCY: EVERY 3 YEARS (Q3YR)
     Route: 059
     Dates: start: 20160422

REACTIONS (5)
  - Pain [Unknown]
  - Weight increased [Unknown]
  - Incorrect product administration duration [Unknown]
  - Hypoaesthesia [Unknown]
  - Complication associated with device [Not Recovered/Not Resolved]

NARRATIVE: CASE EVENT DATE: 20190423
